FAERS Safety Report 10571778 (Version 6)
Quarter: 2017Q1

REPORT INFORMATION
  Report Type: Report from Study
  Country: None (occurrence: NL)
  Receive Date: 20141107
  Receipt Date: 20170221
  Transmission Date: 20170428
  Serious: Yes (Hospitalization)
  Sender: FDA-Public Use
  Company Number: NL-ABBVIE-14P-114-1269044-00

PATIENT
  Age: 73 Year
  Sex: Male
  Weight: 114 kg

DRUGS (15)
  1. LUCRIN [Interacting]
     Active Substance: LEUPROLIDE ACETATE
     Route: 058
  2. PREDNISON [Interacting]
     Active Substance: PREDNISONE
     Indication: FACIAL PARALYSIS
     Route: 065
  3. BUMETANIDE. [Concomitant]
     Active Substance: BUMETANIDE
     Indication: PRODUCT USED FOR UNKNOWN INDICATION
     Route: 048
  4. OMEPRAZOL CAPSULE MSR [Concomitant]
     Indication: PROPHYLAXIS
  5. LUCRIN [Suspect]
     Active Substance: LEUPROLIDE ACETATE
     Indication: PROSTATE CANCER
     Route: 058
     Dates: start: 20140221
  6. LUCRIN [Interacting]
     Active Substance: LEUPROLIDE ACETATE
     Route: 058
  7. CARBASALAATCALCIUM BRUISTABLET [Concomitant]
     Indication: PRODUCT USED FOR UNKNOWN INDICATION
     Route: 048
  8. DENOSUMAB INJVIST [Concomitant]
     Indication: PRODUCT USED FOR UNKNOWN INDICATION
     Dosage: FL 1.7ML
     Route: 058
  9. OMEPRAZOL CAPSULE MSR [Concomitant]
     Indication: GASTRIC DISORDER
     Route: 048
  10. BICALUTAMIDE. [Concomitant]
     Active Substance: BICALUTAMIDE
     Indication: PROSTATE CANCER
     Route: 048
     Dates: start: 2005
  11. POVIDON OOGDRUPPELS [Concomitant]
     Indication: PRODUCT USED FOR UNKNOWN INDICATION
     Dosage: 50 MG/ML FL 10 ML
     Route: 047
  12. CALCI CHEW [Concomitant]
     Indication: OSTEOPOROSIS PROPHYLAXIS
     Route: 048
  13. ARTELAC [Concomitant]
     Active Substance: HYPROMELLOSES
     Indication: PRODUCT USED FOR UNKNOWN INDICATION
     Route: 047
  14. SIMVASTATINE [Concomitant]
     Active Substance: SIMVASTATIN
     Indication: HYPERCHOLESTEROLAEMIA
     Route: 048
  15. LUCRIN [Interacting]
     Active Substance: LEUPROLIDE ACETATE
     Route: 058

REACTIONS (10)
  - Hot flush [Not Recovered/Not Resolved]
  - Weight increased [Recovered/Resolved]
  - Drug interaction [Unknown]
  - Amnesia [Unknown]
  - Injection site reaction [Not Recovered/Not Resolved]
  - Mood swings [Not Recovered/Not Resolved]
  - Injection site mass [Not Recovered/Not Resolved]
  - Breast enlargement [Not Recovered/Not Resolved]
  - Facial paralysis [Not Recovered/Not Resolved]
  - Weight decreased [Not Recovered/Not Resolved]

NARRATIVE: CASE EVENT DATE: 2014
